FAERS Safety Report 8845835 (Version 3)
Quarter: 2012Q4

REPORT INFORMATION
  Report Type: 
  Country: FR (occurrence: FR)
  Receive Date: 20121017
  Receipt Date: 20121205
  Transmission Date: 20130627
  Serious: Yes (Death, Life-Threatening)
  Sender: FDA-Public Use
  Company Number: FR-B.I. PHARMACEUTICALS,INC./RIDGEFIELD-2012-FF-01490FF

PATIENT
  Age: 68 Year
  Sex: Male

DRUGS (9)
  1. PRADAXA [Suspect]
     Indication: ATRIAL FIBRILLATION
     Dosage: 150 mg
     Route: 048
     Dates: start: 20120910, end: 20121011
  2. LASILIX [Concomitant]
     Dosage: 20 mg
  3. HYPERIUM [Concomitant]
  4. TENORDATE [Concomitant]
     Dosage: 50 mg/20 mg
  5. TRIATEC [Concomitant]
     Dosage: 10 mg
  6. GLUCOPHAGE [Concomitant]
     Dosage: 2000 mg
  7. DIAMICRON [Concomitant]
     Dosage: 30 mg
  8. CRESTOR [Concomitant]
     Dosage: 5 mg
  9. KARDEGIC [Concomitant]
     Dosage: 300 mg

REACTIONS (1)
  - Subarachnoid haemorrhage [Fatal]
